FAERS Safety Report 18322050 (Version 1)
Quarter: 2020Q3

REPORT INFORMATION
  Report Type: Spontaneous
  Country: US (occurrence: US)
  Receive Date: 20200929
  Receipt Date: 20200929
  Transmission Date: 20201103
  Serious: No
  Sender: FDA-Public Use
  Company Number: US-BION-008594

PATIENT
  Sex: Female
  Weight: 81.65 kg

DRUGS (1)
  1. IMODIUM A?D [Suspect]
     Active Substance: LOPERAMIDE HYDROCHLORIDE
     Indication: DIARRHOEA
     Dosage: ONCE OR TWICE A DAY 2 AND THEN 1
     Route: 048

REACTIONS (2)
  - Migraine [Not Recovered/Not Resolved]
  - Incorrect product administration duration [Not Recovered/Not Resolved]
